FAERS Safety Report 20283242 (Version 1)
Quarter: 2022Q1

REPORT INFORMATION
  Report Type: Spontaneous
  Country: US (occurrence: US)
  Receive Date: 20220103
  Receipt Date: 20220103
  Transmission Date: 20220424
  Serious: No
  Sender: FDA-Public Use
  Company Number: US-SANOFI-00912454

PATIENT

DRUGS (3)
  1. FLUBLOK QUADRIVALENT NOS [Suspect]
     Active Substance: INFLUENZA VIRUS VACCINE
     Indication: Immunisation
     Route: 065
  2. TUBERSOL [Suspect]
     Active Substance: TUBERCULIN PURIFIED PROTEIN DERIVATIVE
     Indication: Tuberculin test
     Dosage: UNK
     Route: 065
  3. FLUZONE HIGH-DOSE QUADRIVALENT [Suspect]
     Active Substance: INFLUENZA A VIRUS A/MICHIGAN/45/2015 X-275 (H1N1) ANTIGEN (FORMALDEHYDE INACTIVATED)\INFLUENZA A VIR
     Indication: Immunisation
     Route: 065

REACTIONS (1)
  - Product temperature excursion issue [Unknown]
